FAERS Safety Report 7477845-7 (Version None)
Quarter: 2011Q2

REPORT INFORMATION
  Report Type: 
  Country: None (occurrence: None)
  Receive Date: 20110513
  Receipt Date: 20110506
  Transmission Date: 20111010
  Serious: Yes (Hospitalization)
  Sender: FDA-Public Use
  Company Number: US-NOVOPROD-327819

PATIENT
  Age: 18 Year
  Sex: Female

DRUGS (3)
  1. LEVEMIR [Suspect]
     Indication: TYPE 1 DIABETES MELLITUS
     Dosage: 45 U, QD AT BEDTIME
     Route: 058
  2. LEVEMIR [Suspect]
     Dosage: 30 U, QD AT BEDTIME
     Route: 058
     Dates: start: 20110417
  3. HUMALOG [Suspect]
     Indication: TYPE 1 DIABETES MELLITUS
     Dosage: SLIDING SCALE (15 U BREAKFAST, 15 U LUNCH, 20 U SUPPER)
     Route: 058

REACTIONS (4)
  - DEHYDRATION [None]
  - DEVICE LEAKAGE [None]
  - DIABETIC KETOACIDOSIS [None]
  - BLOOD GLUCOSE FLUCTUATION [None]
